FAERS Safety Report 8583750-5 (Version None)
Quarter: 2012Q3

REPORT INFORMATION
  Report Type: 
  Country: None (occurrence: None)
  Receive Date: 20120810
  Receipt Date: 20120720
  Transmission Date: 20120928
  Serious: Yes (Other)
  Sender: FDA-Public Use
  Company Number: JP-009507513-1207JPN007946

PATIENT

DRUGS (4)
  1. PEG-INTRON [Suspect]
     Route: 058
  2. TELAVIC [Suspect]
     Route: 048
  3. REBETOL [Suspect]
     Route: 048
  4. [THERAPY UNSPECIFIED] [Concomitant]
     Route: 065

REACTIONS (1)
  - SYNCOPE [None]
